FAERS Safety Report 13542869 (Version 1)
Quarter: 2017Q2

REPORT INFORMATION
  Report Type: Report from Study
  Country: None (occurrence: US)
  Receive Date: 20170513
  Receipt Date: 20170513
  Transmission Date: 20170830
  Serious: Yes (Other)
  Sender: FDA-Public Use
  Company Number: US-ABBVIE-17K-163-1917818-00

PATIENT
  Age: 81 Year
  Sex: Male
  Weight: 99.88 kg

DRUGS (2)
  1. HUMIRA [Suspect]
     Active Substance: ADALIMUMAB
     Indication: PSORIASIS
     Route: 058
     Dates: start: 201603
  2. METFORMIN [Concomitant]
     Active Substance: METFORMIN HYDROCHLORIDE
     Indication: DIABETES MELLITUS MANAGEMENT

REACTIONS (1)
  - Bladder neoplasm [Recovered/Resolved]

NARRATIVE: CASE EVENT DATE: 201607
